FAERS Safety Report 4725684-X (Version None)
Quarter: 2005Q3

REPORT INFORMATION
  Report Type: 
  Country: None (occurrence: None)
  Receive Date: 20050722
  Receipt Date: 20050722
  Transmission Date: 20060218
  Serious: Yes (Life-Threatening, Hospitalization, Other)
  Sender: FDA-Public Use
  Company Number: None

PATIENT
  Age: 34 Year
  Sex: Female
  Weight: 83.9154 kg

DRUGS (3)
  1. CYMBALTA [Suspect]
     Indication: MUSCLE DISORDER
     Dosage: 2-30MG    DAILY AM  ORAL
     Route: 048
     Dates: start: 20050211, end: 20050305
  2. CYMBALTA [Suspect]
     Indication: PAIN
     Dosage: 2-30MG    DAILY AM  ORAL
     Route: 048
     Dates: start: 20050211, end: 20050305
  3. PAMELOR [Suspect]
     Dosage: 2-25MG   DAILY PM    ORAL
     Route: 048
     Dates: start: 20040911, end: 20050305

REACTIONS (4)
  - ABNORMAL BEHAVIOUR [None]
  - AFFECTIVE DISORDER [None]
  - SUICIDE ATTEMPT [None]
  - THINKING ABNORMAL [None]
